FAERS Safety Report 5207759-4 (Version None)
Quarter: 2006Q4

REPORT INFORMATION
  Report Type: 
  Country: None (occurrence: None)
  Receive Date: 20061030
  Receipt Date: 20060707
  Transmission Date: 20070319
  Serious: No
  Sender: FDA-Public Use
  Company Number: 251734

PATIENT
  Age: 59 Year
  Sex: Female
  Weight: 55.3 kg

DRUGS (1)
  1. LEVEMIR [Suspect]
     Indication: DIABETES MELLITUS INSULIN-DEPENDENT
     Dosage: 20 IU, QD, SUBCUTANEOUS
     Route: 058

REACTIONS (2)
  - INJECTION SITE DISCOLOURATION [None]
  - INJECTION SITE PRURITUS [None]
